FAERS Safety Report 12265442 (Version 1)
Quarter: 2016Q2

REPORT INFORMATION
  Report Type: Spontaneous
  Country: US (occurrence: US)
  Receive Date: 20160413
  Receipt Date: 20160413
  Transmission Date: 20160815
  Serious: Yes (Other)
  Sender: FDA-Public Use
  Company Number: ADR-2015-00496

PATIENT
  Age: 62 Year
  Sex: Male

DRUGS (3)
  1. LIORESAL [Suspect]
     Active Substance: BACLOFEN
     Dosage: 149.8MCG/DAY
     Route: 037
  2. LIORESAL [Suspect]
     Active Substance: BACLOFEN
     Dosage: 100MCG/DAY
     Route: 037
     Dates: start: 20150215
  3. LIORESAL [Suspect]
     Active Substance: BACLOFEN
     Dosage: 190 MCG/DAY
     Route: 037

REACTIONS (5)
  - Muscle spasms [Recovered/Resolved]
  - Medical device pain [Recovered/Resolved]
  - Implant site pain [Recovered/Resolved]
  - Muscle spasticity [Recovered/Resolved]
  - Cerebrospinal fluid leakage [Recovered/Resolved]
